FAERS Safety Report 10102442 (Version 1)
Quarter: 2014Q2

REPORT INFORMATION
  Report Type: Spontaneous
  Country: DE (occurrence: DE)
  Receive Date: 20140424
  Receipt Date: 20140424
  Transmission Date: 20141212
  Serious: Yes (Life-Threatening)
  Sender: FDA-Public Use
  Company Number: DE-JNJFOC-20140413291

PATIENT
  Sex: Male

DRUGS (2)
  1. XARELTO [Suspect]
     Indication: THROMBOSIS PROPHYLAXIS
     Route: 048
     Dates: start: 2014
  2. XARELTO [Suspect]
     Indication: KNEE OPERATION
     Route: 048
     Dates: start: 2014

REACTIONS (2)
  - Cerebral haemorrhage [Not Recovered/Not Resolved]
  - Coma [Not Recovered/Not Resolved]
